FAERS Safety Report 6707358-9 (Version None)
Quarter: 2010Q2

REPORT INFORMATION
  Report Type: 
  Country: None (occurrence: None)
  Receive Date: 20100503
  Receipt Date: 20091019
  Transmission Date: 20101027
  Serious: No
  Sender: FDA-Public Use
  Company Number: US-ASTRAZENECA-2009SE18172

PATIENT
  Age: 89 Year
  Sex: Female

DRUGS (2)
  1. NEXIUM [Suspect]
     Route: 048
     Dates: start: 20091002, end: 20091005
  2. ATACAND [Concomitant]

REACTIONS (9)
  - ASTHENIA [None]
  - BALANCE DISORDER [None]
  - CHILLS [None]
  - DIZZINESS [None]
  - EYE PAIN [None]
  - PAIN [None]
  - TENSION HEADACHE [None]
  - VISION BLURRED [None]
  - VISUAL ACUITY REDUCED [None]
